FAERS Safety Report 9377065 (Version 1)
Quarter: 2013Q3

REPORT INFORMATION
  Report Type: Report from Study
  Country: FR (occurrence: FR)
  Receive Date: 20130701
  Receipt Date: 20130701
  Transmission Date: 20140515
  Serious: Yes (Hospitalization)
  Sender: FDA-Public Use
  Company Number: FR-ROCHE-1242806

PATIENT
  Age: 62 Year
  Sex: Female
  Weight: 72 kg

DRUGS (8)
  1. TOCILIZUMAB [Suspect]
     Indication: RHEUMATOID ARTHRITIS
     Route: 041
     Dates: start: 20121011
  2. TOCILIZUMAB [Suspect]
     Route: 041
     Dates: start: 20121112
  3. TOCILIZUMAB [Suspect]
     Route: 041
     Dates: start: 20130110
  4. METHOTREXATE [Concomitant]
     Route: 065
     Dates: end: 20130110
  5. INFLIXIMAB [Concomitant]
     Route: 065
     Dates: end: 20120403
  6. ABATACEPT [Concomitant]
     Route: 065
     Dates: start: 20120520, end: 20120726
  7. SPECIAFOLDINE [Concomitant]
     Route: 065
  8. DAFALGAN [Concomitant]
     Route: 065

REACTIONS (1)
  - Liver disorder [Not Recovered/Not Resolved]
